FAERS Safety Report 12092381 (Version 1)
Quarter: 2016Q1

REPORT INFORMATION
  Report Type: Spontaneous
  Country: US (occurrence: US)
  Receive Date: 20160219
  Receipt Date: 20160219
  Transmission Date: 20160526
  Serious: No
  Sender: FDA-Public Use
  Company Number: US-IROKO PHARMACEUTICALS LLC-US-I09001-15-00209

PATIENT
  Sex: Female

DRUGS (2)
  1. VIVLODEX [Suspect]
     Active Substance: MELOXICAM
     Indication: PAIN
     Route: 048
     Dates: start: 20151219, end: 20151222
  2. VIVLODEX [Suspect]
     Active Substance: MELOXICAM
     Indication: MUSCULOSKELETAL STIFFNESS

REACTIONS (1)
  - Drug ineffective [Recovered/Resolved]

NARRATIVE: CASE EVENT DATE: 20151219
